FAERS Safety Report 25898302 (Version 1)
Quarter: 2025Q4

REPORT INFORMATION
  Report Type: Spontaneous
  Country: US (occurrence: US)
  Receive Date: 20251008
  Receipt Date: 20251008
  Transmission Date: 20260118
  Serious: No
  Sender: ABBVIE
  Company Number: US-ABBVIE-6489702

PATIENT
  Sex: Female

DRUGS (2)
  1. MIRVETUXIMAB SORAVTANSINE-GYNX [Suspect]
     Active Substance: MIRVETUXIMAB SORAVTANSINE-GYNX
     Indication: Ovarian cancer recurrent
     Dosage: DOSE: 5 MG/MIN
     Route: 042
  2. MIRVETUXIMAB SORAVTANSINE-GYNX [Suspect]
     Active Substance: MIRVETUXIMAB SORAVTANSINE-GYNX
     Indication: Ovarian cancer recurrent
     Dosage: DOSE: 3 MG/MIN
     Route: 042

REACTIONS (1)
  - Abdominal pain [Recovering/Resolving]
